FAERS Safety Report 4752111-9 (Version None)
Quarter: 2005Q3

REPORT INFORMATION
  Report Type: 
  Country: None (occurrence: None)
  Receive Date: 20050825
  Receipt Date: 20050816
  Transmission Date: 20060218
  Serious: Yes (Death, Life-Threatening)
  Sender: FDA-Public Use
  Company Number: DE-JNJFOC-20050803772

PATIENT
  Sex: Female

DRUGS (6)
  1. REMICADE [Suspect]
     Route: 042
  2. REMICADE [Suspect]
     Route: 042
  3. REMICADE [Suspect]
     Indication: RHEUMATOID ARTHRITIS
     Route: 042
  4. LEFLUNOMID [Concomitant]
     Route: 065
  5. LEFLUNOMID [Concomitant]
     Route: 065
  6. LEFLUNOMID [Concomitant]
     Route: 065

REACTIONS (2)
  - DEATH [None]
  - NON-HODGKIN'S LYMPHOMA [None]
